FAERS Safety Report 7224902-6 (Version None)
Quarter: 2011Q1

REPORT INFORMATION
  Report Type: 
  Country: None (occurrence: None)
  Receive Date: 20110113
  Receipt Date: 20110107
  Transmission Date: 20110831
  Serious: Yes (Other)
  Sender: FDA-Public Use
  Company Number: US-ROCHE-752271

PATIENT
  Age: 61 Year
  Sex: Female
  Weight: 54.4 kg

DRUGS (17)
  1. PROZAC [Suspect]
     Dosage: DOSE DECREASED
     Route: 048
  2. ZYPREXA [Suspect]
     Indication: PANIC DISORDER
     Route: 048
     Dates: start: 20060101, end: 20060101
  3. ERGOCALCIFEROL [Concomitant]
  4. THIAMINE HYDROCHLORIDE [Concomitant]
  5. NICOTINAMIDE [Concomitant]
  6. RETINOL [Concomitant]
  7. EFFEXOR [Suspect]
     Route: 048
  8. PROZAC [Suspect]
     Dosage: DOSE DECREASED
     Route: 048
  9. LEXAPRO [Suspect]
     Indication: ANXIETY
     Route: 048
  10. FOLIC ACID [Concomitant]
  11. VALIUM [Suspect]
     Indication: ANXIETY
     Dosage: AT NIGHT
     Route: 048
     Dates: start: 19920101
  12. EFFEXOR [Suspect]
     Dosage: OTHER INDICATION: PANIC DISORDER; FORM: PROLONGED RELEASE CAPSULE
     Route: 048
     Dates: start: 19920101, end: 19940101
  13. PANTHENOL [Concomitant]
  14. RIBOFLAVIN TAB [Concomitant]
  15. PROZAC [Suspect]
     Indication: PANIC DISORDER
     Route: 048
     Dates: start: 19880101
  16. EFFEXOR [Suspect]
     Dosage: DOSE INCREASED
     Route: 048
     Dates: start: 19940101
  17. CALCIUM [Concomitant]

REACTIONS (12)
  - CEREBRAL DISORDER [None]
  - DRUG INEFFECTIVE [None]
  - SUFFOCATION FEELING [None]
  - PSYCHOMOTOR HYPERACTIVITY [None]
  - DRUG INTOLERANCE [None]
  - INSOMNIA [None]
  - FEELING ABNORMAL [None]
  - HYPOPHAGIA [None]
  - POST-TRAUMATIC STRESS DISORDER [None]
  - ANXIETY [None]
  - DRUG DOSE OMISSION [None]
  - WRONG TECHNIQUE IN DRUG USAGE PROCESS [None]
